FAERS Safety Report 16762100 (Version 1)
Quarter: 2019Q3

REPORT INFORMATION
  Report Type: Spontaneous
  Country: US (occurrence: US)
  Receive Date: 20190830
  Receipt Date: 20190830
  Transmission Date: 20191005
  Serious: No
  Sender: FDA-Public Use
  Company Number: US-ELI_LILLY_AND_COMPANY-US201908013652

PATIENT
  Sex: Female

DRUGS (3)
  1. HUMIRA [Suspect]
     Active Substance: ADALIMUMAB
     Indication: PSORIATIC ARTHROPATHY
     Dosage: 40 MG, 2/W
     Route: 058
     Dates: start: 20180814, end: 20190324
  2. HUMIRA [Suspect]
     Active Substance: ADALIMUMAB
     Indication: PSORIASIS
     Dosage: 40 MG, 2/W
     Route: 058
     Dates: start: 201905
  3. PROZAC [Suspect]
     Active Substance: FLUOXETINE HYDROCHLORIDE
     Indication: PRODUCT USED FOR UNKNOWN INDICATION
     Dosage: UNK, UNKNOWN
     Route: 065

REACTIONS (32)
  - Depression [Unknown]
  - Nasal congestion [Unknown]
  - Arthritis [Unknown]
  - Joint swelling [Unknown]
  - Joint stiffness [Unknown]
  - Anxiety [Unknown]
  - Back pain [Unknown]
  - Meniscus injury [Unknown]
  - Muscle spasms [Recovering/Resolving]
  - Snoring [Unknown]
  - Swelling [Not Recovered/Not Resolved]
  - Musculoskeletal pain [Unknown]
  - Arthropathy [Unknown]
  - Ill-defined disorder [Unknown]
  - Arthralgia [Unknown]
  - Pain [Unknown]
  - Exostosis [Unknown]
  - Stress [Unknown]
  - Fall [Recovering/Resolving]
  - Pain in extremity [Unknown]
  - Peripheral swelling [Unknown]
  - Constipation [Unknown]
  - Fatigue [Recovered/Resolved]
  - Headache [Unknown]
  - Back injury [Recovering/Resolving]
  - Nasopharyngitis [Recovered/Resolved]
  - Hyperhidrosis [Unknown]
  - Skin weeping [Unknown]
  - Musculoskeletal stiffness [Unknown]
  - Oropharyngeal pain [Unknown]
  - Gait disturbance [Unknown]
  - Therapeutic product effect incomplete [Unknown]
